FAERS Safety Report 14341207 (Version 1)
Quarter: 2018Q1

REPORT INFORMATION
  Report Type: Spontaneous
  Country: FR (occurrence: FR)
  Receive Date: 20180102
  Receipt Date: 20180102
  Transmission Date: 20180509
  Serious: Yes (Hospitalization)
  Sender: FDA-Public Use
  Company Number: FR-SUN PHARMACEUTICAL INDUSTRIES LTD-2017R1-158448

PATIENT
  Age: 45 Year
  Sex: Female
  Weight: 57 kg

DRUGS (3)
  1. LEXOMIL (BROMAZEPAM) [Suspect]
     Active Substance: BROMAZEPAM
     Indication: DEPRESSION
     Route: 047
     Dates: start: 20171106, end: 20171106
  2. PARACETAMOL [Suspect]
     Active Substance: ACETAMINOPHEN
     Indication: PRODUCT USED FOR UNKNOWN INDICATION
     Dosage: 6 A 8G PRISE UNIQUE
     Route: 048
     Dates: start: 20171106, end: 20171106
  3. ALCOHOL. [Suspect]
     Active Substance: ALCOHOL
     Indication: PRODUCT USED FOR UNKNOWN INDICATION
     Dosage: NP
     Route: 048
     Dates: start: 20171106, end: 20171106

REACTIONS (4)
  - Coma [Recovered/Resolved]
  - Rales [Recovered/Resolved]
  - Intentional overdose [Recovered/Resolved]
  - Urinary incontinence [Recovered/Resolved]

NARRATIVE: CASE EVENT DATE: 20171106
